FAERS Safety Report 12825772 (Version 1)
Quarter: 2016Q4

REPORT INFORMATION
  Report Type: Spontaneous
  Country: US (occurrence: US)
  Receive Date: 20161007
  Receipt Date: 20161007
  Transmission Date: 20170207
  Serious: Yes (Death)
  Sender: FDA-Public Use
  Company Number: US-RB-047227-12

PATIENT
  Age: 16 Year
  Sex: Female

DRUGS (5)
  1. SUBOXONE [Suspect]
     Active Substance: BUPRENORPHINE HYDROCHLORIDE\NALOXONE HYDROCHLORIDE
     Indication: SUBSTANCE USE
  2. KLONOPIN [Suspect]
     Active Substance: CLONAZEPAM
     Indication: SUBSTANCE USE
  3. ALCOHOL. [Suspect]
     Active Substance: ALCOHOL
     Indication: ALCOHOL ABUSE
     Dosage: DOSING DETAILS UNKNOWN
     Route: 065
     Dates: end: 20120526
  4. SUBOXONE [Suspect]
     Active Substance: BUPRENORPHINE HYDROCHLORIDE\NALOXONE HYDROCHLORIDE
     Indication: DRUG ABUSE
     Dosage: UNKNOWN, ONCE
     Route: 060
     Dates: start: 20120526, end: 20120526
  5. KLONOPIN [Suspect]
     Active Substance: CLONAZEPAM
     Indication: DRUG ABUSE
     Dosage: DOSING DETAILS UNKNOWN, ONCE
     Route: 048
     Dates: start: 20120526, end: 20120526

REACTIONS (5)
  - Alcohol abuse [Recovered/Resolved]
  - Toxicity to various agents [Fatal]
  - Substance abuse [Recovered/Resolved]
  - Overdose [Fatal]
  - Therapy naive [Recovered/Resolved]

NARRATIVE: CASE EVENT DATE: 20120526
